FAERS Safety Report 25451552 (Version 1)
Quarter: 2025Q2

REPORT INFORMATION
  Report Type: Spontaneous
  Country: FR (occurrence: FR)
  Receive Date: 20250618
  Receipt Date: 20250618
  Transmission Date: 20250717
  Serious: Yes (Other)
  Sender: AMGEN
  Company Number: None

PATIENT
  Age: 70 Year
  Sex: Male
  Weight: 86 kg

DRUGS (3)
  1. REPATHA [Suspect]
     Active Substance: EVOLOCUMAB
     Indication: Hypercholesterolaemia
     Dosage: 280 MILLIGRAM, QMO
     Route: 058
     Dates: start: 20240201, end: 20240516
  2. ASPIRIN [Concomitant]
     Active Substance: ASPIRIN
     Indication: Product used for unknown indication
     Route: 048
  3. IRBESARTAN [Concomitant]
     Active Substance: IRBESARTAN
     Indication: Product used for unknown indication
     Route: 065

REACTIONS (4)
  - Rhabdomyolysis [Not Recovered/Not Resolved]
  - Dental caries [Recovered/Resolved]
  - Neoplasm malignant [Not Recovered/Not Resolved]
  - Herpes ophthalmic [Not Recovered/Not Resolved]

NARRATIVE: CASE EVENT DATE: 20240201
